FAERS Safety Report 12240167 (Version 8)
Quarter: 2016Q3

REPORT INFORMATION
  Report Type: Spontaneous
  Country: US (occurrence: US)
  Receive Date: 20160405
  Receipt Date: 20160829
  Transmission Date: 20161109
  Serious: Yes (Hospitalization)
  Sender: FDA-Public Use
  Company Number: US-ACTELION-A-US2016-133186

PATIENT
  Age: 60 Year
  Sex: Female

DRUGS (6)
  1. OPSUMIT [Suspect]
     Active Substance: MACITENTAN
     Indication: PULMONARY HYPERTENSION
     Dosage: 10 MG, QD
     Route: 048
     Dates: start: 20160205
  2. DILTIAZEM. [Concomitant]
     Active Substance: DILTIAZEM
  3. COUMADIN [Concomitant]
     Active Substance: WARFARIN SODIUM
  4. VENTAVIS [Suspect]
     Active Substance: ILOPROST
     Indication: PULMONARY HYPERTENSION
     Dosage: 5 MCG, 6-9X/DAY
     Route: 055
  5. RIOCIGUAT [Concomitant]
     Active Substance: RIOCIGUAT
     Dosage: 2.5 MG, UNK
  6. VENTAVIS [Suspect]
     Active Substance: ILOPROST
     Dosage: 2.5 MCG, 6X/DAY
     Route: 055
     Dates: start: 20080521

REACTIONS (19)
  - Gait disturbance [Unknown]
  - Hypotension [Unknown]
  - Exercise tolerance decreased [Unknown]
  - Dizziness [Recovered/Resolved]
  - Palpitations [Unknown]
  - Chest pain [Unknown]
  - Dyspnoea exertional [Unknown]
  - Abdominal distension [Unknown]
  - Sickle cell anaemia with crisis [Recovered/Resolved]
  - Heart rate abnormal [Unknown]
  - Peripheral swelling [Unknown]
  - Sickle cell anaemia [Unknown]
  - Blood count abnormal [Unknown]
  - Pain [Unknown]
  - Cough [Unknown]
  - Pneumonia [Recovered/Resolved]
  - Vertigo [Recovered/Resolved]
  - Fluid retention [Unknown]
  - Fatigue [Unknown]

NARRATIVE: CASE EVENT DATE: 201603
